FAERS Safety Report 8388020 (Version 6)
Quarter: 2014Q3

REPORT INFORMATION
  Report Type: Spontaneous
  Country: US (occurrence: US)
  Receive Date: 20120203
  Receipt Date: 20140922
  Transmission Date: 20150326
  Serious: Yes (Other)
  Sender: FDA-Public Use
  Company Number: US-GLAXOSMITHKLINE-A0906007A

PATIENT
  Sex: Female

DRUGS (3)
  1. LAMICTAL [Suspect]
     Active Substance: LAMOTRIGINE
     Indication: CONVULSION
     Dosage: 100MG PER DAY
     Route: 048
     Dates: start: 20031231
  2. SURGERY [Concomitant]
  3. UNKNOWN MEDICATION [Concomitant]
     Active Substance: UNSPECIFIED INGREDIENT

REACTIONS (12)
  - Nasopharyngitis [Unknown]
  - Malaise [Unknown]
  - Speech disorder [Not Recovered/Not Resolved]
  - Dental care [Unknown]
  - Transient ischaemic attack [Unknown]
  - Breast cancer [Unknown]
  - Head injury [Unknown]
  - Bradyphrenia [Unknown]
  - Cerebrovascular accident [Unknown]
  - Concussion [Unknown]
  - Memory impairment [Not Recovered/Not Resolved]
  - Therapeutic response changed [Unknown]
